FAERS Safety Report 6477407-4 (Version None)
Quarter: 2009Q4

REPORT INFORMATION
  Report Type: 
  Country: None (occurrence: None)
  Receive Date: 20091202
  Receipt Date: 20091120
  Transmission Date: 20100525
  Serious: Yes (Death)
  Sender: FDA-Public Use
  Company Number: 2009SP035258

PATIENT
  Age: 67 Year
  Sex: Female

DRUGS (9)
  1. MIRTAZAPINE [Suspect]
     Indication: DEPRESSION
     Dosage: 15 MG;QD;PO
     Route: 048
     Dates: start: 20091022
  2. MIRTAZAPINE [Suspect]
     Indication: INSOMNIA
     Dosage: 15 MG;QD;PO
     Route: 048
     Dates: start: 20091022
  3. ZOLPIDEM TARTRATE [Suspect]
     Indication: INSOMNIA
     Dosage: 10 MG;QD;PO
     Route: 048
     Dates: start: 20090807
  4. FLUNITRAZEPAM (FLUNITRAZEPAM) [Suspect]
     Indication: INSOMNIA
     Dosage: 1 MG;QD;PO
     Route: 048
     Dates: start: 20091002
  5. PAROXETINE HCL [Suspect]
     Indication: DEPRESSION
     Dosage: 10 MG;QD;PO
     Route: 048
     Dates: start: 20090825, end: 20091022
  6. BROTIZOLAM [Concomitant]
  7. ROSUVASTATIN CALCIUM [Concomitant]
  8. DOGMATYL [Concomitant]
  9. GASCON [Concomitant]

REACTIONS (10)
  - ASPHYXIA [None]
  - CHEST DISCOMFORT [None]
  - COMPLETED SUICIDE [None]
  - DIARRHOEA [None]
  - DRUG INEFFECTIVE [None]
  - HYPOCHONDRIASIS [None]
  - INSOMNIA [None]
  - NAUSEA [None]
  - PAIN [None]
  - VOMITING [None]
